FAERS Safety Report 5194496-8 (Version None)
Quarter: 2006Q4

REPORT INFORMATION
  Report Type: 
  Country: None (occurrence: None)
  Receive Date: 20061226
  Receipt Date: 20061211
  Transmission Date: 20070319
  Serious: Yes (Hospitalization)
  Sender: FDA-Public Use
  Company Number: DISJP-06-0664

PATIENT
  Age: 14 Year
  Sex: Female
  Weight: 54 kg

DRUGS (25)
  1. DIPRIVAN [Suspect]
     Indication: ANALGESIC THERAPY
     Dosage: SEE IMAGE
     Route: 042
     Dates: start: 20040430, end: 20040430
  2. DIPRIVAN [Suspect]
     Indication: BLEEDING TIME PROLONGED
     Dosage: SEE IMAGE
     Route: 042
     Dates: start: 20040430, end: 20040430
  3. DIPRIVAN [Suspect]
     Indication: BLOOD PRESSURE INCREASED
     Dosage: SEE IMAGE
     Route: 042
     Dates: start: 20040430, end: 20040430
  4. DIPRIVAN [Suspect]
     Indication: BRAIN OEDEMA
     Dosage: SEE IMAGE
     Route: 042
     Dates: start: 20040430, end: 20040430
  5. DIPRIVAN [Suspect]
     Indication: CEREBRAL VASOCONSTRICTION
     Dosage: SEE IMAGE
     Route: 042
     Dates: start: 20040430, end: 20040430
  6. DIPRIVAN [Suspect]
     Indication: GENERAL ANAESTHESIA
     Dosage: SEE IMAGE
     Route: 042
     Dates: start: 20040430, end: 20040430
  7. DIPRIVAN [Suspect]
     Indication: HYPOTONIA
     Dosage: SEE IMAGE
     Route: 042
     Dates: start: 20040430, end: 20040430
  8. DIPRIVAN [Suspect]
     Indication: INDUCTION OF ANAESTHESIA
     Dosage: SEE IMAGE
     Route: 042
     Dates: start: 20040430, end: 20040430
  9. DIPRIVAN [Suspect]
     Indication: INFECTION PROPHYLAXIS
     Dosage: SEE IMAGE
     Route: 042
     Dates: start: 20040430, end: 20040430
  10. DIPRIVAN [Suspect]
     Indication: MAINTENANCE OF ANAESTHESIA
     Dosage: SEE IMAGE
     Route: 042
     Dates: start: 20040430, end: 20040430
  11. DIPRIVAN [Suspect]
     Indication: SEDATION
     Dosage: SEE IMAGE
     Route: 042
     Dates: start: 20040430, end: 20040430
  12. DIPRIVAN [Suspect]
     Indication: SINUS TACHYCARDIA
     Dosage: SEE IMAGE
     Route: 042
     Dates: start: 20040430, end: 20040430
  13. DIPRIVAN [Suspect]
     Indication: VOMITING
     Dosage: SEE IMAGE
     Route: 042
     Dates: start: 20040430, end: 20040430
  14. PRIMPERAN TAB [Concomitant]
  15. SOSEGAN (PENTAZOCINE) [Concomitant]
  16. DILTIAZEM HYDROCHLORIDE [Concomitant]
  17. PERIDIPINE (NICARDIPINE HYDROCHLORIDE) [Concomitant]
  18. FENTANYL CITRATE [Concomitant]
  19. VECURONIUM BROMIDE [Concomitant]
  20. SEVOFLURANE [Concomitant]
  21. MANNIGEN (MANNITOL) [Concomitant]
  22. THIOPENTAL SODIUM [Concomitant]
  23. SOLU-MEDROL (METHYLPREDNISOLONE SODIU SUCCINATE) [Concomitant]
  24. TRANSAMIN (TRANEXAMIC ACID) [Concomitant]
  25. CEFOTIAM HYDROCHLORIDE [Concomitant]

REACTIONS (12)
  - ASPARTATE AMINOTRANSFERASE INCREASED [None]
  - BLOOD LACTATE DEHYDROGENASE INCREASED [None]
  - BODY TEMPERATURE DECREASED [None]
  - DELAYED RECOVERY FROM ANAESTHESIA [None]
  - DEPRESSED LEVEL OF CONSCIOUSNESS [None]
  - HEPATIC TRAUMA [None]
  - HYPERKALAEMIA [None]
  - HYPOPERFUSION [None]
  - LIVER DISORDER [None]
  - PYREXIA [None]
  - REFUSAL OF EXAMINATION [None]
  - RHABDOMYOLYSIS [None]
